FAERS Safety Report 6201815-X (Version None)
Quarter: 2009Q2

REPORT INFORMATION
  Report Type: 
  Country: None (occurrence: None)
  Receive Date: 20090526
  Receipt Date: 20090520
  Transmission Date: 20091009
  Serious: Yes (Disabling, Other)
  Sender: FDA-Public Use
  Company Number: US-TEVA-187447USA

PATIENT
  Sex: Female

DRUGS (2)
  1. CLARAVIS CAPSULE, ISOTRETINOIN, 20MG, 30MG, 40MG [Suspect]
     Route: 048
     Dates: start: 20081105, end: 20090209
  2. ISOTRETINOIN [Suspect]
     Route: 048
     Dates: start: 20080908

REACTIONS (2)
  - SELECTIVE ABORTION [None]
  - UNINTENDED PREGNANCY [None]
